FAERS Safety Report 15133927 (Version 1)
Quarter: 2018Q3

REPORT INFORMATION
  Report Type: Spontaneous
  Country: US (occurrence: US)
  Receive Date: 20180615
  Receipt Date: 20180615
  Transmission Date: 20181010
  Serious: No
  Sender: FDA-Public Use
  Company Number: None

PATIENT
  Age: 40 Year
  Sex: Female
  Weight: 132.75 kg

DRUGS (12)
  1. LEVAQUIN [Suspect]
     Active Substance: LEVOFLOXACIN
     Indication: SINUSITIS
     Dosage: ?          QUANTITY:7 TABLET(S);?
     Route: 048
  2. ZINC. [Concomitant]
     Active Substance: ZINC
  3. METOPROLOL. [Concomitant]
     Active Substance: METOPROLOL
  4. SINGULAIR [Concomitant]
     Active Substance: MONTELUKAST SODIUM
  5. D2 [Concomitant]
  6. POTASSIUM [Concomitant]
     Active Substance: POTASSIUM
  7. LOSARTIN [Concomitant]
     Active Substance: LOSARTAN
  8. ZYRTEC [Concomitant]
     Active Substance: CETIRIZINE HYDROCHLORIDE
  9. MAGNESIUM [Concomitant]
     Active Substance: MAGNESIUM
  10. MIRENA [Concomitant]
     Active Substance: LEVONORGESTREL
  11. GLUCOPHAGE [Concomitant]
     Active Substance: METFORMIN HYDROCHLORIDE
  12. PRILOSEC [Concomitant]
     Active Substance: OMEPRAZOLE MAGNESIUM

REACTIONS (4)
  - Nightmare [None]
  - Diarrhoea [None]
  - Abnormal dreams [None]
  - Anxiety [None]

NARRATIVE: CASE EVENT DATE: 20180615
